FAERS Safety Report 10362197 (Version 1)
Quarter: 2014Q1

REPORT INFORMATION
  Report Type: Spontaneous
  Country: US (occurrence: None)
  Receive Date: 20140306
  Receipt Date: 20140306
  Transmission Date: 20141002
  Serious: Yes (Disabling, Other)
  Sender: FDA-Public Use
  Company Number: 163-21880-13021083

PATIENT
  Age: 78 Year
  Sex: Female
  Weight: 47.17 kg

DRUGS (7)
  1. REVLIMID (LENALIDOMIDE) (5 MILLIGRAM, CAPSULES) [Suspect]
     Indication: MYELODYSPLASTIC SYNDROME
     Route: 048
     Dates: start: 20110930, end: 2013
  2. FOLIC ACID (UNKNOWN) [Concomitant]
  3. IRON (TALBETS) [Concomitant]
  4. OMEPRAZOLE (CAPSULES) [Concomitant]
  5. VITAMIN B12 (CYANOCOBALAMIN) (UNKNOWN) [Concomitant]
  6. VITAMIN B6 (PYRIDOXINE HYDROCHLORIDE) (TABLETS) [Concomitant]
  7. SYSTANE (RHINARIS) (DROPS) [Concomitant]

REACTIONS (4)
  - Blindness [None]
  - Dry eye [None]
  - Haemoglobin decreased [None]
  - Platelet count decreased [None]
